FAERS Safety Report 17796960 (Version 1)
Quarter: 2020Q2

REPORT INFORMATION
  Report Type: Spontaneous
  Country: ES (occurrence: ES)
  Receive Date: 20200518
  Receipt Date: 20200518
  Transmission Date: 20200714
  Serious: Yes (Hospitalization)
  Sender: FDA-Public Use
  Company Number: ES-ACCORD-182152

PATIENT
  Age: 80 Year
  Sex: Female
  Weight: 84 kg

DRUGS (5)
  1. FENTANYL TRANSDERMAL SYSTEM [Interacting]
     Active Substance: FENTANYL
     Indication: LUMBAR SPINAL STENOSIS
     Dosage: STRENGTH: 25 MICROGRAMS / HOUR TRANSDERMAL PATCHES EFG, 5 PATCHES
     Route: 062
     Dates: start: 20200416, end: 20200421
  2. PREGABALIN KERN PHARMA [Interacting]
     Active Substance: PREGABALIN
     Indication: LUMBAR SPINAL STENOSIS
     Dosage: STRENGTH:  75 MG HARD CAPSULES EFG, 100 CAPSULES
     Route: 048
     Dates: start: 20200417
  3. ZALDIAR [Interacting]
     Active Substance: ACETAMINOPHEN\TRAMADOL HYDROCHLORIDE
     Indication: PRODUCT USED FOR UNKNOWN INDICATION
     Dosage: STRENGTH: 37.5 MG / 325 MG, 20 TABLETS
     Route: 048
     Dates: start: 20200417, end: 20200420
  4. PAROXETINE. [Concomitant]
     Active Substance: PAROXETINE
     Route: 048
     Dates: start: 20191029
  5. QUETIAPINE. [Suspect]
     Active Substance: QUETIAPINE
     Indication: PRODUCT USED FOR UNKNOWN INDICATION
     Route: 048
     Dates: start: 20200417, end: 20200421

REACTIONS (3)
  - Femur fracture [Recovering/Resolving]
  - Fall [Unknown]
  - Drug interaction [Unknown]

NARRATIVE: CASE EVENT DATE: 20200420
